FAERS Safety Report 6445139-4 (Version None)
Quarter: 2009Q4

REPORT INFORMATION
  Report Type: 
  Country: None (occurrence: None)
  Receive Date: 20091116
  Receipt Date: 20091116
  Transmission Date: 20100525
  Serious: Yes (Hospitalization)
  Sender: FDA-Public Use
  Company Number: None

PATIENT

DRUGS (1)
  1. IMIPENEM AND CILASTATIN SODIUM [Suspect]
     Indication: INFECTION
     Dosage: 500 MG QID IV
     Route: 042
     Dates: start: 20090815, end: 20090818

REACTIONS (1)
  - GRAND MAL CONVULSION [None]
